FAERS Safety Report 9182236 (Version 1)
Quarter: 2013Q1

REPORT INFORMATION
  Report Type: Spontaneous
  Country: US (occurrence: None)
  Receive Date: 20120621
  Receipt Date: 20120621
  Transmission Date: 20140127
  Serious: Yes (Other)
  Sender: FDA-Public Use
  Company Number: 055642

PATIENT
  Age: 43 Year
  Sex: Female

DRUGS (2)
  1. CIMZIA [Suspect]
     Indication: CROHN^S DISEASE
     Dates: start: 20100211
  2. PREDNISONE [Concomitant]

REACTIONS (7)
  - Blue toe syndrome [None]
  - Rash [None]
  - Butterfly rash [None]
  - Gastric ulcer [None]
  - Skin injury [None]
  - Contusion [None]
  - Post gastric surgery syndrome [None]
